FAERS Safety Report 8381124-3 (Version None)
Quarter: 2012Q2

REPORT INFORMATION
  Report Type: 
  Country: None (occurrence: None)
  Receive Date: 20120523
  Receipt Date: 20120510
  Transmission Date: 20120825
  Serious: Yes (Other)
  Sender: FDA-Public Use
  Company Number: US-ELI_LILLY_AND_COMPANY-US201205004164

PATIENT
  Age: 73 Year
  Sex: Male

DRUGS (2)
  1. ALIMTA [Suspect]
     Dosage: 500 MG, UNKNOWN
     Route: 042
  2. CARBOPLATIN [Concomitant]

REACTIONS (1)
  - CEREBROVASCULAR ACCIDENT [None]
